FAERS Safety Report 5936785-2 (Version None)
Quarter: 2008Q4

REPORT INFORMATION
  Report Type: 
  Country: None (occurrence: None)
  Receive Date: 20081029
  Receipt Date: 20081014
  Transmission Date: 20090506
  Serious: Yes (Hospitalization)
  Sender: FDA-Public Use
  Company Number: 2008S1017897

PATIENT
  Age: 54 Year
  Sex: Male
  Weight: 79.3795 kg

DRUGS (5)
  1. FENTANYL TRANSDERMAL SYSTEM [Suspect]
     Indication: PAIN
     Dosage: 100 UG; EVERY HOUR; TRANSDERMAL
     Route: 062
     Dates: start: 20080701
  2. NALBUPHINE HCL [Suspect]
     Indication: PAIN
     Dosage: ; AS NEEDED; INTRAVENOUS
     Route: 042
     Dates: start: 20080921, end: 20080921
  3. VALIUM [Concomitant]
  4. ALDACTONE [Concomitant]
  5. AMBIEN [Concomitant]

REACTIONS (12)
  - BURNING SENSATION [None]
  - CHILLS [None]
  - DIARRHOEA [None]
  - DRUG EFFECT DECREASED [None]
  - DRUG INTERACTION [None]
  - HYPERHIDROSIS [None]
  - MUSCLE SPASMS [None]
  - MUSCLE TWITCHING [None]
  - PARANOIA [None]
  - PRODUCT QUALITY ISSUE [None]
  - VISUAL IMPAIRMENT [None]
  - YAWNING [None]
